FAERS Safety Report 7388089-1 (Version None)
Quarter: 2011Q1

REPORT INFORMATION
  Report Type: 
  Country: None (occurrence: None)
  Receive Date: 20110324
  Receipt Date: 20110315
  Transmission Date: 20110831
  Serious: Yes (Death, Hospitalization)
  Sender: FDA-Public Use
  Company Number: 2011MA002437

PATIENT
  Age: 16 Month
  Sex: Female

DRUGS (3)
  1. LEVETIRACETAM [Suspect]
     Indication: EPILEPSY
     Dosage: 30 MG/KG; OD;
  2. CLONAZEPAM [Concomitant]
  3. VIGABATRIN [Concomitant]

REACTIONS (6)
  - CHOKING [None]
  - NEURODEVELOPMENTAL DISORDER [None]
  - COMA BLISTER [None]
  - ACUTE RESPIRATORY FAILURE [None]
  - SWELLING FACE [None]
  - SOMNOLENCE [None]
